FAERS Safety Report 10855285 (Version 1)
Quarter: 2015Q1

REPORT INFORMATION
  Report Type: Report from Study
  Country: FR (occurrence: FR)
  Receive Date: 20150223
  Receipt Date: 20150223
  Transmission Date: 20150721
  Serious: Yes (Other)
  Sender: FDA-Public Use
  Company Number: FR-ABBVIE-15K-056-1347500-00

PATIENT
  Age: 59 Year
  Sex: Male

DRUGS (4)
  1. ENBREL [Suspect]
     Active Substance: ETANERCEPT
     Indication: ANKYLOSING SPONDYLITIS
  2. HUMIRA [Suspect]
     Active Substance: ADALIMUMAB
     Indication: ANKYLOSING SPONDYLITIS
  3. ENBREL [Suspect]
     Active Substance: ETANERCEPT
     Indication: LEUKOCYTE ANTIGEN B-27 POSITIVE
     Route: 065
  4. HUMIRA [Suspect]
     Active Substance: ADALIMUMAB
     Indication: LEUKOCYTE ANTIGEN B-27 POSITIVE
     Route: 065

REACTIONS (3)
  - Guillain-Barre syndrome [Recovered/Resolved]
  - Drug effect decreased [Unknown]
  - Paralysis [Unknown]
